FAERS Safety Report 21259828 (Version 1)
Quarter: 2022Q3

REPORT INFORMATION
  Report Type: Spontaneous
  Country: JP (occurrence: JP)
  Receive Date: 20220826
  Receipt Date: 20220826
  Transmission Date: 20221026
  Serious: Yes (Hospitalization, Other)
  Sender: FDA-Public Use
  Company Number: JP-MTPC-MTPC2022-0022684

PATIENT
  Age: 5 Decade
  Sex: Male

DRUGS (4)
  1. REMICADE [Suspect]
     Active Substance: INFLIXIMAB
     Indication: Colitis ulcerative
     Dosage: 5 MILLIGRAM/KILOGRAM, QD
     Route: 041
  2. REMICADE [Suspect]
     Active Substance: INFLIXIMAB
     Dosage: 5 MILLIGRAM/KILOGRAM, QD
     Route: 041
     Dates: start: 20140206, end: 20140206
  3. ASACOL [Concomitant]
     Active Substance: MESALAMINE
     Dosage: 3600 MILLIGRAM, QD
     Route: 065
     Dates: start: 20140206, end: 20140211
  4. IMURAN [Concomitant]
     Active Substance: AZATHIOPRINE
     Dosage: 50 MILLIGRAM, QD
     Route: 065
     Dates: start: 20140206, end: 20140211

REACTIONS (2)
  - Palpitations [Unknown]
  - Haematochezia [Unknown]

NARRATIVE: CASE EVENT DATE: 20140206
